FAERS Safety Report 9402022 (Version 1)
Quarter: 2013Q3

REPORT INFORMATION
  Report Type: Spontaneous
  Country: MX (occurrence: MX)
  Receive Date: 20130716
  Receipt Date: 20130716
  Transmission Date: 20140515
  Serious: Yes (Other)
  Sender: FDA-Public Use
  Company Number: PHHY2013MX073519

PATIENT
  Sex: Male

DRUGS (5)
  1. ONBREZ [Suspect]
     Indication: CHRONIC OBSTRUCTIVE PULMONARY DISEASE
     Dosage: 300 UG, QD
     Dates: start: 201202, end: 201210
  2. ONBREZ [Suspect]
     Dosage: 300 UG, BID
     Dates: start: 201210
  3. PULMICORT [Concomitant]
     Indication: RESPIRATORY DISORDER
     Dosage: UNK
     Dates: start: 2011
  4. COMBIVENT [Concomitant]
     Indication: RESPIRATORY DISORDER
     Dosage: UNK
     Dates: start: 2010
  5. OXYGEN [Concomitant]
     Indication: DYSPNOEA
     Dosage: UNK
     Dates: start: 2012

REACTIONS (2)
  - Asphyxia [Recovered/Resolved]
  - Incorrect dose administered [Unknown]
